FAERS Safety Report 9077544 (Version 1)
Quarter: 2013Q1

REPORT INFORMATION
  Report Type: Spontaneous
  Country: GB (occurrence: GB)
  Receive Date: 20130215
  Receipt Date: 20130215
  Transmission Date: 20140127
  Serious: Yes (Hospitalization)
  Sender: FDA-Public Use
  Company Number: PHHY2013GB014637

PATIENT
  Age: 79 Year
  Sex: Male

DRUGS (12)
  1. PIOGLITAZONE [Suspect]
     Indication: TYPE 2 DIABETES MELLITUS
     Dosage: 30 MG, QD
     Route: 048
     Dates: start: 20120501, end: 20130120
  2. DOXAZOSIN [Concomitant]
  3. FERROUS FUMARATE [Concomitant]
  4. TILDIEM LA [Concomitant]
  5. PERINDOPRIL [Concomitant]
  6. METFORMIN [Concomitant]
  7. ASPIRIN [Concomitant]
  8. TERBUTALINE [Concomitant]
  9. SYMBICORT [Concomitant]
  10. DIPYRIDAMOLE [Concomitant]
  11. HYDROXOCOBALAMIN [Concomitant]
  12. ATORVASTATIN [Concomitant]

REACTIONS (5)
  - Poverty of speech [Unknown]
  - Productive cough [Unknown]
  - Tricuspid valve incompetence [Unknown]
  - Cardiac failure [Not Recovered/Not Resolved]
  - Dyspnoea [Unknown]
